FAERS Safety Report 9620273 (Version 2)
Quarter: 2013Q4

REPORT INFORMATION
  Report Type: Spontaneous
  Country: US (occurrence: US)
  Receive Date: 20131014
  Receipt Date: 20131014
  Transmission Date: 20140711
  Serious: No
  Sender: FDA-Public Use
  Company Number: US-ALLERGAN-1305377US

PATIENT
  Sex: Female

DRUGS (6)
  1. ALPHAGAN P [Suspect]
     Indication: INTRAOCULAR PRESSURE INCREASED
     Dosage: 1 GTT, Q12H
     Route: 047
     Dates: start: 201304
  2. ALPHAGAN P [Suspect]
     Dosage: 1 GTT, QAM
     Route: 047
     Dates: start: 20130410
  3. TRAVATAN [Concomitant]
     Indication: INTRAOCULAR PRESSURE INCREASED
     Dosage: 2 GTT, QHS
     Route: 047
     Dates: start: 2012
  4. LOSARTAN [Concomitant]
     Indication: HYPERTENSION
     Dosage: UNK
  5. SPIRONOLACTONE [Concomitant]
     Indication: HYPERTENSION
     Dosage: UNK
     Dates: start: 2003
  6. ASA [Concomitant]
     Indication: CARDIOVASCULAR EVENT PROPHYLAXIS
     Dosage: UNK

REACTIONS (4)
  - Inappropriate schedule of drug administration [Unknown]
  - Scleral discolouration [Recovered/Resolved]
  - Eye pain [Not Recovered/Not Resolved]
  - Eye pruritus [Recovered/Resolved]
